FAERS Safety Report 5090403-7 (Version None)
Quarter: 2006Q3

REPORT INFORMATION
  Report Type: 
  Country: None (occurrence: None)
  Receive Date: 20060828
  Receipt Date: 20060615
  Transmission Date: 20061208
  Serious: Yes (Other)
  Sender: FDA-Public Use
  Company Number: GB-BRISTOL-MYERS SQUIBB COMPANY-13413547

PATIENT
  Age: 33 Year
  Sex: Male
  Weight: 71 kg

DRUGS (5)
  1. REYATAZ [Suspect]
     Indication: HIV INFECTION
     Route: 048
     Dates: start: 20050801, end: 20060610
  2. VIDEX [Suspect]
     Indication: HIV INFECTION
     Route: 048
     Dates: start: 20050801, end: 20060610
  3. TENOFOVIR [Concomitant]
     Indication: HIV INFECTION
     Route: 048
     Dates: start: 20050801, end: 20060610
  4. RITONAVIR [Concomitant]
     Indication: HIV INFECTION
     Dates: start: 20050801
  5. SEPTRIN [Concomitant]
     Indication: PROPHYLAXIS
     Route: 048
     Dates: start: 20050301

REACTIONS (1)
  - MYOSITIS [None]
